FAERS Safety Report 4304512-0 (Version None)
Quarter: 2004Q1

REPORT INFORMATION
  Report Type: 
  Country: None (occurrence: None)
  Receive Date: 20040223
  Receipt Date: 20040223
  Transmission Date: 20041129
  Serious: Yes (Life-Threatening, Disabling)
  Sender: FDA-Public Use
  Company Number: None

PATIENT
  Age: 54 Year
  Sex: Female
  Weight: 49.8957 kg

DRUGS (5)
  1. ZICAM ALLERGY REMEDY ZICAM LLC [Suspect]
     Indication: HYPERSENSITIVITY
     Dosage: 3X/DAY WHEN NEEDE NASAL
     Route: 045
     Dates: start: 20020910, end: 20040112
  2. ZICAM ALLERGY REMEDY ZICAM LLC [Suspect]
     Indication: NASAL CONGESTION
     Dosage: 3X/DAY WHEN NEEDE NASAL
     Route: 045
     Dates: start: 20020910, end: 20040112
  3. ZICAM COLD REMEDY ZICAM LLC [Suspect]
     Indication: NASOPHARYNGITIS
     Dosage: 3X/DAY WHEN NEEDE NASAL
     Route: 045
     Dates: start: 20020910, end: 20040112
  4. CLARITIN [Concomitant]
  5. SUPHEDRINE [Concomitant]

REACTIONS (3)
  - ANOSMIA [None]
  - HYPOGEUSIA [None]
  - MULTIPLE ALLERGIES [None]
